FAERS Safety Report 17856730 (Version 2)
Quarter: 2020Q3

REPORT INFORMATION
  Report Type: Spontaneous
  Country: FR (occurrence: FR)
  Receive Date: 20200603
  Receipt Date: 20200722
  Transmission Date: 20201103
  Serious: Yes (Hospitalization)
  Sender: FDA-Public Use
  Company Number: NVSC2020FR151895

PATIENT
  Age: 73 Year
  Sex: Female
  Weight: 80 kg

DRUGS (9)
  1. PARACETAMOL [Concomitant]
     Active Substance: ACETAMINOPHEN
     Indication: GAIT DISTURBANCE
     Dosage: 500 MG
     Route: 048
  2. REPAGLINIDE. [Concomitant]
     Active Substance: REPAGLINIDE
     Indication: TYPE 2 DIABETES MELLITUS
     Dosage: 3 MG, QD
     Route: 048
  3. PREDNISONE. [Concomitant]
     Active Substance: PREDNISONE
     Indication: PRODUCT USED FOR UNKNOWN INDICATION
     Dosage: 80 MG, QD
     Route: 048
     Dates: start: 20200218
  4. IMUREL [Suspect]
     Active Substance: AZATHIOPRINE SODIUM
     Indication: NECROTISING MYOSITIS
     Dosage: 1 DF, QD
     Route: 048
     Dates: start: 20200218, end: 20200225
  5. IRBESARTAN. [Suspect]
     Active Substance: IRBESARTAN
     Indication: HYPERTENSION
     Dosage: 300 MG, QD
     Route: 048
     Dates: end: 20200225
  6. METFORMINE [Concomitant]
     Active Substance: METFORMIN HYDROCHLORIDE
     Indication: TYPE 2 DIABETES MELLITUS
     Dosage: 2550 MG, QD
     Route: 048
     Dates: end: 20200225
  7. KARDEGIC [Concomitant]
     Active Substance: ASPIRIN DL-LYSINE
     Indication: CARDIOVASCULAR EVENT PROPHYLAXIS
     Dosage: 1 DF, QD
     Route: 048
  8. ATORVASTATIN [Suspect]
     Active Substance: ATORVASTATIN
     Indication: HYPERCHOLESTEROLAEMIA
     Dosage: INCONNUE
     Route: 048
     Dates: start: 201204, end: 201804
  9. TEGELINE [Suspect]
     Active Substance: HUMAN IMMUNOGLOBULIN G
     Indication: NECROTISING MYOSITIS
     Dosage: 30 G, QD
     Route: 041
     Dates: start: 20200218, end: 20200222

REACTIONS (2)
  - Acute kidney injury [Recovered/Resolved]
  - Necrotising myositis [Recovering/Resolving]

NARRATIVE: CASE EVENT DATE: 2017
